FAERS Safety Report 12864668 (Version 3)
Quarter: 2016Q4

REPORT INFORMATION
  Report Type: Spontaneous
  Country: US (occurrence: US)
  Receive Date: 20161020
  Receipt Date: 20161202
  Transmission Date: 20170207
  Serious: No
  Sender: FDA-Public Use
  Company Number: PHEH2016US024800

PATIENT
  Age: 56 Year
  Sex: Female
  Weight: 70.84 kg

DRUGS (1)
  1. ESTRADIOL. [Suspect]
     Active Substance: ESTRADIOL
     Indication: MENOPAUSAL SYMPTOMS
     Dosage: 0.1 MG, QD
     Route: 062
     Dates: start: 201603, end: 201610

REACTIONS (5)
  - Nervousness [Unknown]
  - Drug hypersensitivity [Unknown]
  - Urticaria [Unknown]
  - Rash [Recovered/Resolved]
  - Papule [Unknown]

NARRATIVE: CASE EVENT DATE: 201610
